FAERS Safety Report 25306161 (Version 3)
Quarter: 2025Q2

REPORT INFORMATION
  Report Type: Report from Study
  Country: US (occurrence: US)
  Receive Date: 20250513
  Receipt Date: 20250620
  Transmission Date: 20250717
  Serious: No
  Sender: SUNOVION
  Company Number: US-SUMITOMO PHARMA SWITZERLAND GMBH-2025SPA001202

PATIENT

DRUGS (4)
  1. ORGOVYX [Suspect]
     Active Substance: RELUGOLIX
     Indication: Prostate cancer
     Dosage: 360 MG, SINGLE
     Route: 048
     Dates: start: 20250120, end: 20250120
  2. ORGOVYX [Suspect]
     Active Substance: RELUGOLIX
     Dosage: 240 MG, QD
     Route: 048
     Dates: start: 20250121, end: 20250122
  3. ORGOVYX [Suspect]
     Active Substance: RELUGOLIX
     Dosage: 120 MG, QD
     Route: 048
     Dates: start: 20250123
  4. LUPRON [Suspect]
     Active Substance: LEUPROLIDE ACETATE
     Indication: Product used for unknown indication
     Route: 065

REACTIONS (13)
  - Miliaria [Unknown]
  - Hypokinesia [Unknown]
  - Pruritus [Unknown]
  - Sleep disorder [Unknown]
  - Joint swelling [Unknown]
  - Pain [Unknown]
  - Sluggishness [Unknown]
  - Abdominal discomfort [Unknown]
  - Rash [Unknown]
  - Myalgia [Unknown]
  - Arthralgia [Unknown]
  - Weight increased [Unknown]
  - Incorrect dose administered [Unknown]
